FAERS Safety Report 16525445 (Version 5)
Quarter: 2019Q3

REPORT INFORMATION
  Report Type: Spontaneous
  Country: US (occurrence: US)
  Receive Date: 20190702
  Receipt Date: 20190917
  Transmission Date: 20191004
  Serious: Yes (Disabling, Other)
  Sender: FDA-Public Use
  Company Number: US-BEH-2019103999

PATIENT
  Sex: Female

DRUGS (2)
  1. HIZENTRA [Suspect]
     Active Substance: HUMAN IMMUNOGLOBULIN G
     Dosage: UNK
     Route: 058
     Dates: start: 201304, end: 201401
  2. HIZENTRA [Suspect]
     Active Substance: HUMAN IMMUNOGLOBULIN G
     Indication: IMMUNODEFICIENCY
     Dosage: 20 MILLILITER, QW
     Route: 058
     Dates: start: 201804, end: 201905

REACTIONS (16)
  - Fatigue [Recovering/Resolving]
  - Arthritis [Unknown]
  - Loss of personal independence in daily activities [Not Recovered/Not Resolved]
  - Rash [Not Recovered/Not Resolved]
  - Balance disorder [Unknown]
  - Pain [Unknown]
  - Grip strength decreased [Unknown]
  - Skin fissures [Not Recovered/Not Resolved]
  - Asthenia [Recovering/Resolving]
  - Malaise [Unknown]
  - Depressed mood [Unknown]
  - Skin ulcer [Unknown]
  - Asthenia [Not Recovered/Not Resolved]
  - Fatigue [Recovering/Resolving]
  - Furuncle [Unknown]
  - Bedridden [Unknown]

NARRATIVE: CASE EVENT DATE: 2015
